FAERS Safety Report 14576690 (Version 12)
Quarter: 2019Q2

REPORT INFORMATION
  Report Type: Report from Study
  Country: DE (occurrence: DE)
  Receive Date: 20180227
  Receipt Date: 20190624
  Transmission Date: 20190711
  Serious: Yes (Hospitalization, Other)
  Sender: FDA-Public Use
  Company Number: DE-BRISTOL-MYERS SQUIBB COMPANY-BMS-2017-100377

PATIENT
  Age: 70 Year
  Sex: Female

DRUGS (8)
  1. NIVOLUMAB [Suspect]
     Active Substance: NIVOLUMAB
     Indication: PRODUCT USED FOR UNKNOWN INDICATION
     Dosage: 55.81 MG, UNK
     Route: 065
     Dates: start: 20180212
  2. INSULIN [Concomitant]
     Active Substance: INSULIN NOS
     Indication: PRODUCT USED FOR UNKNOWN INDICATION
     Dosage: UNK
     Route: 065
  3. IPILIMUMAB [Suspect]
     Active Substance: IPILIMUMAB
     Indication: PRODUCT USED FOR UNKNOWN INDICATION
     Dosage: 171.77 MG, UNK
     Route: 065
     Dates: start: 20180212, end: 20180305
  4. NIVOLUMAB [Suspect]
     Active Substance: NIVOLUMAB
     Indication: MALIGNANT MELANOMA
     Dosage: 56.1 MG, Q2WK
     Route: 042
     Dates: start: 20170713, end: 20170803
  5. IPILIMUMAB [Suspect]
     Active Substance: IPILIMUMAB
     Indication: MALIGNANT MELANOMA
     Dosage: 174 MG, Q3WK
     Route: 042
     Dates: start: 20170713, end: 20170803
  6. CEFUROXIME SODIUM. [Concomitant]
     Active Substance: CEFUROXIME SODIUM
     Indication: PRODUCT USED FOR UNKNOWN INDICATION
     Dosage: 1000 MG, UNK
     Route: 048
     Dates: start: 20171227, end: 20171230
  7. NIVOLUMAB [Suspect]
     Active Substance: NIVOLUMAB
     Indication: PRODUCT USED FOR UNKNOWN INDICATION
     Dosage: 480.71 MG, Q2WK
     Route: 042
     Dates: start: 20170713
  8. INSULIN GLARGINE [Concomitant]
     Active Substance: INSULIN GLARGINE
     Indication: PRODUCT USED FOR UNKNOWN INDICATION
     Dosage: UNK
     Route: 065

REACTIONS (9)
  - Nausea [Recovered/Resolved]
  - Hypothyroidism [Not Recovered/Not Resolved]
  - Lipase increased [Recovered/Resolved]
  - Malignant neoplasm progression [Recovered/Resolved]
  - Hyperglycaemia [Recovering/Resolving]
  - Hepatobiliary disease [Recovered/Resolved]
  - Metastases to pancreas [Not Recovered/Not Resolved]
  - Vulvovaginal candidiasis [Recovered/Resolved]
  - Urethral disorder [Recovered/Resolved]

NARRATIVE: CASE EVENT DATE: 20170812
